FAERS Safety Report 4841239-0 (Version None)
Quarter: 2005Q4

REPORT INFORMATION
  Report Type: 
  Country: None (occurrence: None)
  Receive Date: 20051130
  Receipt Date: 20050731
  Transmission Date: 20060501
  Serious: Yes (Other)
  Sender: FDA-Public Use
  Company Number: AU-AVENTIS-200512427EU

PATIENT
  Age: 50 Year
  Sex: Male

DRUGS (2)
  1. RILUTEK [Suspect]
     Indication: MOTOR NEURONE DISEASE
     Dosage: DOSE: UNK
     Route: 048
  2. NALTREXONE [Suspect]
     Indication: MOTOR NEURONE DISEASE

REACTIONS (8)
  - ALANINE AMINOTRANSFERASE INCREASED [None]
  - ASPARTATE AMINOTRANSFERASE INCREASED [None]
  - DRUG INTERACTION [None]
  - HEPATIC ENZYME INCREASED [None]
  - HEPATOTOXICITY [None]
  - JAUNDICE [None]
  - LETHARGY [None]
  - NAUSEA [None]
